FAERS Safety Report 10166824 (Version 1)
Quarter: 2014Q2

REPORT INFORMATION
  Report Type: Spontaneous
  Country: US (occurrence: None)
  Receive Date: 20140509
  Receipt Date: 20140509
  Transmission Date: 20141212
  Serious: No
  Sender: FDA-Public Use
  Company Number: None

PATIENT
  Sex: Male
  Weight: 97.52 kg

DRUGS (6)
  1. SUBOXONE [Suspect]
     Indication: DRUG DEPENDENCE
     Dosage: 1 PILL TWICE DAILY MOUTH
     Route: 048
     Dates: start: 20131120, end: 20131220
  2. XANAX [Suspect]
  3. LISINOPRIL [Suspect]
  4. CELEXA [Suspect]
  5. ADDERALL [Suspect]
  6. SUBUTEX [Suspect]

REACTIONS (4)
  - Nausea [None]
  - Vomiting [None]
  - Constipation [None]
  - Reaction to azo-dyes [None]
